FAERS Safety Report 17301443 (Version 3)
Quarter: 2021Q4

REPORT INFORMATION
  Report Type: Spontaneous
  Country: US (occurrence: US)
  Receive Date: 20200122
  Receipt Date: 20211109
  Transmission Date: 20220303
  Serious: Yes (Other)
  Sender: FDA-Public Use
  Company Number: US-PFIZER INC-2020028745

PATIENT
  Age: 73 Year
  Sex: Male
  Weight: 88.45 kg

DRUGS (5)
  1. XELJANZ XR [Suspect]
     Active Substance: TOFACITINIB CITRATE
     Indication: Rheumatoid arthritis
     Dosage: 11 MG, UNK
  2. XELJANZ XR [Suspect]
     Active Substance: TOFACITINIB CITRATE
     Dosage: 11 MG
     Route: 048
     Dates: start: 20190715, end: 202106
  3. PREDNISONE [Concomitant]
     Active Substance: PREDNISONE
     Indication: Rheumatoid arthritis
     Dosage: 1 MG, 1X/DAY
     Route: 048
     Dates: start: 201904, end: 2020
  4. METHOTREXATE [Concomitant]
     Active Substance: METHOTREXATE
     Indication: Rheumatoid arthritis
     Dosage: 2.5 MG (8 TABLETS ONCE A WEEK ALL AT ONCE BY MOUTH)
     Route: 048
     Dates: start: 201910
  5. TRAMADOL [Concomitant]
     Active Substance: TRAMADOL
     Dosage: 50 MG, DAILY (ONE TO TWO TABLETS PER DAY AS NEEDED BY MOUTH)
     Route: 048
     Dates: start: 2020

REACTIONS (4)
  - Cachexia [Unknown]
  - Asthenia [Unknown]
  - Joint dislocation [Unknown]
  - Vocal cord disorder [Unknown]
